FAERS Safety Report 5259059-4 (Version None)
Quarter: 2007Q1

REPORT INFORMATION
  Report Type: 
  Country: None (occurrence: None)
  Receive Date: 20070305
  Receipt Date: 20070223
  Transmission Date: 20070707
  Serious: Yes (Life-Threatening)
  Sender: FDA-Public Use
  Company Number: GXKR2007GB01985

PATIENT
  Age: 48 Year
  Sex: Female
  Weight: 75 kg

DRUGS (2)
  1. FLUOXETINE [Suspect]
     Indication: ANXIETY
     Dosage: 20 MG, ORAL
     Route: 048
     Dates: start: 20061101, end: 20070201
  2. WARFARIN SODIUM [Concomitant]

REACTIONS (2)
  - CONDITION AGGRAVATED [None]
  - PULMONARY HYPERTENSION [None]
